FAERS Safety Report 10963452 (Version 1)
Quarter: 2015Q1

REPORT INFORMATION
  Report Type: Spontaneous
  Country: US (occurrence: None)
  Receive Date: 20150326
  Receipt Date: 20150326
  Transmission Date: 20150721
  Serious: Yes (Other)
  Sender: FDA-Public Use
  Company Number: 2015COV00063

PATIENT
  Sex: Male

DRUGS (2)
  1. DIGOXIN (DIGOXIN) UNKNOWN [Suspect]
     Active Substance: DIGOXIN
  2. AMIODARONE [Suspect]
     Active Substance: AMIODARONE
     Route: 042

REACTIONS (1)
  - Optic neuropathy [None]
